FAERS Safety Report 9916170 (Version 2)
Quarter: 2014Q1

REPORT INFORMATION
  Report Type: Spontaneous
  Country: US (occurrence: None)
  Receive Date: 20140219
  Receipt Date: 20140227
  Transmission Date: 20141002
  Serious: Yes (Hospitalization)
  Sender: FDA-Public Use
  Company Number: UTC-044608

PATIENT
  Age: 49 Year
  Sex: Female

DRUGS (13)
  1. REMODULIN (2.5 MILLIGRAM/MILLILITERS, INJECTION FOR INFUSION (TREPROSTINIL SODIUM) [Suspect]
     Indication: PULMONARY ARTERIAL HYPERTENSION
     Dosage: 46.08 UG/KG (0.032 UG/KG, 1 IN 1 MIN), INTRAVENOUS DRIP
     Dates: start: 20130416
  2. REMODULIN (2.5 MILLIGRAM/MILLILITERS, INJECTION FOR INFUSION (TREPROSTINIL SODIUM) [Suspect]
     Indication: PULMONARY ARTERIAL HYPERTENSION
     Dosage: 46.08 UG/KG (0.032 UG/KG, 1 IN 1 MIN), INTRAVENOUS DRIP
     Dates: start: 20130416
  3. ALDACTONE (SPIRONOLACTONE) [Concomitant]
  4. FUROSEMIDE [Concomitant]
  5. CARDIZEM (DILTIAZEM) [Concomitant]
  6. OXYCODONE [Concomitant]
  7. LYRICA (PREGABALIN) [Concomitant]
  8. TRAMADOL [Concomitant]
  9. XANAX (ALPRAZOLAM) [Concomitant]
  10. ATORVASTATIN [Concomitant]
  11. LEVOTHYROXINE [Concomitant]
  12. PROPRANOLOL [Concomitant]
  13. NOVOLOG (INSULIN ASPART) [Concomitant]

REACTIONS (2)
  - Polyuria [None]
  - Catheterisation cardiac [None]
